FAERS Safety Report 21120710 (Version 1)
Quarter: 2022Q3

REPORT INFORMATION
  Report Type: Spontaneous
  Country: ZA (occurrence: ZA)
  Receive Date: 20220722
  Receipt Date: 20220722
  Transmission Date: 20221027
  Serious: Yes (Life-Threatening)
  Sender: FDA-Public Use
  Company Number: ZA-TEVA-2022-ZA-2052739

PATIENT
  Age: 60 Year
  Sex: Female
  Weight: 71 kg

DRUGS (5)
  1. CARBOPLATIN [Suspect]
     Active Substance: CARBOPLATIN
     Indication: Ovarian cancer
     Route: 042
  2. CARBOPLATIN [Suspect]
     Active Substance: CARBOPLATIN
     Dosage: 510 MG EVERY 3 WEEKS
     Route: 042
     Dates: start: 20180731
  3. Dexona [Concomitant]
     Indication: Product used for unknown indication
     Route: 042
     Dates: start: 20180731
  4. GEMCITABINE HYDROCHLORIDE [Concomitant]
     Active Substance: GEMCITABINE HYDROCHLORIDE
     Indication: Ovarian cancer
     Dosage: 1710 MILLIGRAM; D1, D8 EVERY 3 WEEKS
     Route: 042
     Dates: start: 20180731
  5. GRANISETRON [Concomitant]
     Active Substance: GRANISETRON
     Indication: Ovarian cancer
     Dosage: 3MG; D1, D8 EVERY 3 WEEKS
     Route: 042
     Dates: start: 20180731

REACTIONS (5)
  - Dyspnoea [Recovered/Resolved]
  - Pruritus [Recovered/Resolved]
  - Nasal congestion [Recovered/Resolved]
  - Throat irritation [Recovered/Resolved]
  - Restlessness [Recovered/Resolved]

NARRATIVE: CASE EVENT DATE: 20180911
